FAERS Safety Report 4533940-3 (Version None)
Quarter: 2004Q4

REPORT INFORMATION
  Report Type: 
  Country: None (occurrence: None)
  Receive Date: 20041214
  Receipt Date: 20040914
  Transmission Date: 20050328
  Serious: Yes (Other)
  Sender: FDA-Public Use
  Company Number: S04-USA-01391-01

PATIENT
  Age: 27 Year
  Sex: Female
  Weight: 76.6579 kg

DRUGS (1)
  1. LEXAPRO [Suspect]
     Indication: DEPRESSION
     Dosage: 10 MG QD PO
     Route: 048
     Dates: start: 20040301, end: 20040303

REACTIONS (5)
  - AMNESIA [None]
  - FACE OEDEMA [None]
  - MENTAL STATUS CHANGES [None]
  - MIGRAINE [None]
  - MUSCLE TWITCHING [None]
